FAERS Safety Report 18348904 (Version 1)
Quarter: 2020Q4

REPORT INFORMATION
  Report Type: Spontaneous
  Country: FR (occurrence: FR)
  Receive Date: 20201006
  Receipt Date: 20201006
  Transmission Date: 20210114
  Serious: Yes (Life-Threatening)
  Sender: FDA-Public Use
  Company Number: FR-ACCORD-204259

PATIENT
  Age: 67 Year
  Sex: Male
  Weight: 56 kg

DRUGS (10)
  1. FLUOROURACIL ACCORD [Suspect]
     Active Substance: FLUOROURACIL
     Indication: COLORECTAL ADENOCARCINOMA
     Dosage: STRENGTH: 50 MG / ML
     Route: 041
     Dates: start: 20200806, end: 20200807
  2. IRINOTECAN KABI [Concomitant]
     Active Substance: IRINOTECAN
     Dosage: STRENGTH: 20 MG/ML
  3. CARBOSYMAG [Concomitant]
  4. DOLIPRANE [Concomitant]
     Active Substance: ACETAMINOPHEN
  5. ZARZIO [Concomitant]
     Active Substance: FILGRASTIM
  6. AMLODIPINE [Concomitant]
     Active Substance: AMLODIPINE BESYLATE
  7. OXALIPLATIN ACCORD [Concomitant]
     Active Substance: OXALIPLATIN
     Dosage: STRENGTH: 5 MG / ML
  8. TRAMADOL. [Concomitant]
     Active Substance: TRAMADOL
  9. ATARAX [Concomitant]
     Active Substance: HYDROXYZINE HYDROCHLORIDE
     Dosage: STRENGTH: 25 MG
  10. LOPERAMIDE [Concomitant]
     Active Substance: LOPERAMIDE

REACTIONS (4)
  - Ejection fraction decreased [Not Recovered/Not Resolved]
  - Congestive cardiomyopathy [Not Recovered/Not Resolved]
  - Ventricular hypokinesia [Not Recovered/Not Resolved]
  - Stress cardiomyopathy [Not Recovered/Not Resolved]

NARRATIVE: CASE EVENT DATE: 20200808
